FAERS Safety Report 25344860 (Version 1)
Quarter: 2025Q2

REPORT INFORMATION
  Report Type: Report from Study
  Country: US (occurrence: US)
  Receive Date: 20250522
  Receipt Date: 20250522
  Transmission Date: 20250717
  Serious: Yes (Other)
  Sender: EMD SERONO INC
  Company Number: US-Merck Healthcare KGaA-2025024705

PATIENT
  Age: 54 Year
  Sex: Male

DRUGS (1)
  1. SEROSTIM [Suspect]
     Active Substance: SOMATROPIN
     Indication: Cachexia
     Dosage: INJECT 6 MG SUBCUTANEOUSLY PER DAY FOR 28 DAYS

REACTIONS (9)
  - Hypothyroidism [Not Recovered/Not Resolved]
  - Increased appetite [Unknown]
  - Depression [Not Recovered/Not Resolved]
  - Weight increased [Unknown]
  - Fat tissue increased [Not Recovered/Not Resolved]
  - Hyperhidrosis [Not Recovered/Not Resolved]
  - Nervousness [Not Recovered/Not Resolved]
  - Gynaecomastia [Not Recovered/Not Resolved]
  - Ill-defined disorder [Unknown]
